FAERS Safety Report 5776797-5 (Version None)
Quarter: 2008Q2

REPORT INFORMATION
  Report Type: 
  Country: None (occurrence: None)
  Receive Date: 20080618
  Receipt Date: 20080409
  Transmission Date: 20081010
  Serious: No
  Sender: FDA-Public Use
  Company Number: US-ASTRAZENECA-2008UW07221

PATIENT
  Age: 31498 Day
  Sex: Female
  Weight: 40.8 kg

DRUGS (10)
  1. SYMBICORT [Suspect]
     Indication: ASTHMA
     Dosage: 80/4.5 UG 2 PUFFS DAILY
     Route: 055
     Dates: start: 20080408, end: 20080408
  2. SYMBICORT [Suspect]
     Dosage: 80/4.5 UG 1 PUFF ONCE DAILY
     Route: 055
     Dates: start: 20080409
  3. CARDURA [Concomitant]
  4. REMERON [Concomitant]
  5. FLONASE [Concomitant]
  6. ALBUTEROL [Concomitant]
  7. TEMAZEPAM [Concomitant]
  8. SPIRIVA [Concomitant]
  9. NEXIUM [Concomitant]
  10. DEPAKOTE [Concomitant]

REACTIONS (4)
  - DISTRACTIBILITY [None]
  - HEADACHE [None]
  - NERVOUSNESS [None]
  - PALPITATIONS [None]
